FAERS Safety Report 5225842-4 (Version None)
Quarter: 2007Q1

REPORT INFORMATION
  Report Type: 
  Country: None (occurrence: None)
  Receive Date: 20070130
  Receipt Date: 20070130
  Transmission Date: 20070707
  Serious: No
  Sender: FDA-Public Use
  Company Number: None

PATIENT
  Sex: Female

DRUGS (1)
  1. COMBIVIR [Suspect]

REACTIONS (2)
  - NO THERAPEUTIC RESPONSE [None]
  - OCULAR MYASTHENIA [None]
